FAERS Safety Report 5679819-5 (Version None)
Quarter: 2008Q1

REPORT INFORMATION
  Report Type: 
  Country: None (occurrence: None)
  Receive Date: 20080324
  Receipt Date: 20080312
  Transmission Date: 20080703
  Serious: Yes (Hospitalization, Other)
  Sender: FDA-Public Use
  Company Number: 2008AL001589

PATIENT
  Sex: Female
  Weight: 3 kg

DRUGS (1)
  1. PROMETH W/ CODEINE [Suspect]
     Indication: DRUG EXPOSURE DURING PREGNANCY
     Dosage: 5 ML QD TRPL
     Route: 064

REACTIONS (14)
  - BRAIN OEDEMA [None]
  - CARDIAC SEPTAL DEFECT [None]
  - CAROTID ARTERY OCCLUSION [None]
  - CEREBRAL INFARCTION [None]
  - CONVULSION NEONATAL [None]
  - DRUG EXPOSURE DURING PREGNANCY [None]
  - DRUG SCREEN POSITIVE [None]
  - FEEDING DISORDER NEONATAL [None]
  - HYPERTONIA NEONATAL [None]
  - LABORATORY TEST ABNORMAL [None]
  - NEONATAL DISORDER [None]
  - PROTEIN C INCREASED [None]
  - SEPSIS NEONATAL [None]
  - TRICUSPID VALVE INCOMPETENCE [None]
